FAERS Safety Report 25752155 (Version 1)
Quarter: 2025Q3

REPORT INFORMATION
  Report Type: Spontaneous
  Country: US (occurrence: None)
  Receive Date: 20250902
  Receipt Date: 20250902
  Transmission Date: 20251020
  Serious: Yes (Other)
  Sender: FDA-CTU
  Company Number: None

PATIENT
  Age: 27 Year
  Sex: Female
  Weight: 85.5 kg

DRUGS (4)
  1. NEXPLANON [Suspect]
     Active Substance: ETONOGESTREL
     Indication: Contraception
     Route: 058
     Dates: start: 20200122, end: 20220713
  2. UNSPECIFIED INGREDIENT [Concomitant]
     Active Substance: UNSPECIFIED INGREDIENT
  3. ADHD meds [Concomitant]
  4. anti-allergies [Concomitant]

REACTIONS (4)
  - Depression [None]
  - Suicidal ideation [None]
  - Therapy change [None]
  - Complication associated with device [None]

NARRATIVE: CASE EVENT DATE: 20220720
